FAERS Safety Report 21736014 (Version 1)
Quarter: 2022Q4

REPORT INFORMATION
  Report Type: Spontaneous
  Country: US (occurrence: US)
  Receive Date: 20221215
  Receipt Date: 20221215
  Transmission Date: 20230112
  Serious: No
  Sender: FDA-Public Use
  Company Number: US-NOVOPROD-879127

PATIENT
  Age: 71 Year
  Sex: Female

DRUGS (4)
  1. LEVEMIR [Suspect]
     Active Substance: INSULIN DETEMIR
     Dosage: INCREASED TO 15 UNITS X2
     Route: 058
  2. LEVEMIR [Suspect]
     Active Substance: INSULIN DETEMIR
     Indication: Type 1 diabetes mellitus
     Dosage: 12 UNITS IN THE MORNING AND 10 IN THE NIGHT. INCREASED TO 15 UNITS X2
     Route: 058
     Dates: start: 2018
  3. LEVEMIR [Suspect]
     Active Substance: INSULIN DETEMIR
     Dosage: INCREASED TO 15 UNITS X2
     Route: 058
  4. LEVEMIR [Suspect]
     Active Substance: INSULIN DETEMIR
     Dosage: 12 UNITS IN THE MORNING AND 10 IN THE NIGHT. INCREASED TO 15 UNITS X2
     Route: 058

REACTIONS (4)
  - Malaise [Unknown]
  - Blood glucose increased [Unknown]
  - Product quality issue [Unknown]
  - Drug ineffective [Unknown]

NARRATIVE: CASE EVENT DATE: 20211201
